FAERS Safety Report 8085701-9 (Version None)
Quarter: 2012Q1

REPORT INFORMATION
  Report Type: 
  Country: None (occurrence: None)
  Receive Date: 20120128
  Receipt Date: 20110531
  Transmission Date: 20120608
  Serious: No
  Sender: FDA-Public Use
  Company Number: US-ABBOTT-11P-163-0729994-00

PATIENT
  Sex: Female
  Weight: 81.72 kg

DRUGS (11)
  1. LISINOPRIL [Concomitant]
     Indication: HYPERTENSION
  2. OXYCODONE HCL [Concomitant]
     Indication: PAIN
  3. HUMIRA [Suspect]
     Dates: start: 20110530
  4. PREVALITE [Concomitant]
     Indication: DIARRHOEA
  5. HUMIRA [Suspect]
     Indication: CROHN'S DISEASE
     Route: 058
     Dates: start: 20100701, end: 20110523
  6. ESTROGENIC SUBSTANCE [Concomitant]
     Indication: ILL-DEFINED DISORDER
  7. OXYCODONE HCL [Concomitant]
     Indication: CROHN'S DISEASE
  8. PENTASA [Concomitant]
     Indication: CROHN'S DISEASE
  9. PREDNISONE TAB [Concomitant]
     Indication: CROHN'S DISEASE
  10. LEVOXYL [Concomitant]
     Indication: THYROID DISORDER
  11. PHENERGAN [Concomitant]
     Indication: NAUSEA

REACTIONS (4)
  - DRUG INEFFECTIVE [None]
  - DIARRHOEA [None]
  - VOMITING [None]
  - MALAISE [None]
